FAERS Safety Report 10062215 (Version 1)
Quarter: 2014Q1

REPORT INFORMATION
  Report Type: Spontaneous
  Country: US (occurrence: None)
  Receive Date: 20140312
  Receipt Date: 20140312
  Transmission Date: 20141002
  Serious: Yes (Life-Threatening)
  Sender: FDA-Public Use
  Company Number: 1646961

PATIENT
  Age: 55 Year
  Sex: Male

DRUGS (3)
  1. FENTANYL (FENTANYL CITRATE) [Suspect]
     Indication: SEDATION
     Dosage: 1000 MCG IN 100 ML NS (UNKNOWN)
     Route: 041
     Dates: start: 20130301, end: 20130301
  2. SODIUM CHLORIDE (SODIUM CHLORIDE) [Concomitant]
  3. PROPOFOL [Concomitant]

REACTIONS (4)
  - Device computer issue [None]
  - Incorrect dose administered [None]
  - Bradycardia [None]
  - Cardiac arrest [None]
